FAERS Safety Report 5650422-6 (Version None)
Quarter: 2008Q1

REPORT INFORMATION
  Report Type: 
  Country: None (occurrence: None)
  Receive Date: 20080303
  Receipt Date: 20080222
  Transmission Date: 20080703
  Serious: Yes (Hospitalization)
  Sender: FDA-Public Use
  Company Number: 2008SP004017

PATIENT
  Age: 52 Year
  Sex: Male

DRUGS (6)
  1. TEMODAL [Suspect]
     Indication: METASTATIC MALIGNANT MELANOMA
     Dosage: 275 MG; QD; PO, 275 MG; QD; PO
     Route: 048
     Dates: start: 20080131, end: 20080206
  2. TEMODAL [Suspect]
     Indication: METASTATIC MALIGNANT MELANOMA
     Dosage: 275 MG; QD; PO, 275 MG; QD; PO
     Route: 048
     Dates: start: 20080214
  3. SORAFENIB (SORAFENIB) [Suspect]
     Indication: METASTATIC MALIGNANT MELANOMA
     Dosage: 800 MG; QD; PO,  400 MG; QD; PO
     Route: 048
     Dates: start: 20080207, end: 20080213
  4. SORAFENIB (SORAFENIB) [Suspect]
     Indication: METASTATIC MALIGNANT MELANOMA
     Dosage: 800 MG; QD; PO,  400 MG; QD; PO
     Route: 048
     Dates: start: 20080220
  5. TOPALGIC (TRAMADOL CHLORHYDRATE) [Concomitant]
  6. VOGALENE [Concomitant]

REACTIONS (3)
  - GALLBLADDER DISORDER [None]
  - PALMAR-PLANTAR ERYTHRODYSAESTHESIA SYNDROME [None]
  - PANCREATITIS [None]
